FAERS Safety Report 19124299 (Version 1)
Quarter: 2021Q2

REPORT INFORMATION
  Report Type: Spontaneous
  Country: US (occurrence: US)
  Receive Date: 20210412
  Receipt Date: 20210412
  Transmission Date: 20210717
  Serious: No
  Sender: FDA-Public Use
  Company Number: US-VERTEX PHARMACEUTICALS-2021-005457

PATIENT
  Age: 35 Year
  Sex: Female
  Weight: 96 kg

DRUGS (4)
  1. INOSITOL SUPPLEMENT [Concomitant]
     Active Substance: INOSITOL
  2. TRIKAFTA [Suspect]
     Active Substance: ELEXACAFTOR\IVACAFTOR\TEZACAFTOR
     Indication: CYSTIC FIBROSIS
     Dosage: 2TABS(100MG ELEXACAFTOR/50MG TEZACAFTOR/75MG IVACAFTOR)AM;1TAB(150MG IVACAFTOR)PM
     Route: 048
     Dates: start: 202004, end: 20210127
  3. LEVOTHYROXINE. [Concomitant]
     Active Substance: LEVOTHYROXINE
     Dosage: 75MCG; DAILY
  4. LEVOTHYROXINE. [Concomitant]
     Active Substance: LEVOTHYROXINE
     Dosage: REDUCED DOSE;50MCG DAILY

REACTIONS (5)
  - Anxiety [Unknown]
  - Diarrhoea [Recovered/Resolved]
  - Action tremor [Recovering/Resolving]
  - Asthenia [Recovering/Resolving]
  - Presyncope [Recovered/Resolved]

NARRATIVE: CASE EVENT DATE: 202101
